FAERS Safety Report 5886218-X (Version None)
Quarter: 2008Q3

REPORT INFORMATION
  Report Type: 
  Country: None (occurrence: None)
  Receive Date: 20080917
  Receipt Date: 20080904
  Transmission Date: 20090109
  Serious: Yes (Life-Threatening)
  Sender: FDA-Public Use
  Company Number: IT-ELI_LILLY_AND_COMPANY-IT200809000899

PATIENT
  Age: 74 Year
  Sex: Female

DRUGS (1)
  1. XIGRIS [Suspect]
     Indication: SEPTIC SHOCK
     Dosage: 65 MG TOTALLY
     Route: 065
     Dates: start: 20040723, end: 20040725

REACTIONS (1)
  - THROMBOCYTOPENIA [None]
